FAERS Safety Report 9414918 (Version 1)
Quarter: 2013Q3

REPORT INFORMATION
  Report Type: Spontaneous
  Country: US (occurrence: None)
  Receive Date: 20130718
  Receipt Date: 20130718
  Transmission Date: 20140515
  Serious: Yes (Other)
  Sender: FDA-Public Use
  Company Number: AUR-APL-2013-05936

PATIENT
  Age: 57 Year
  Sex: Female
  Weight: 92.52 kg

DRUGS (3)
  1. VENLAFAXINE [Suspect]
     Indication: PRODUCT USED FOR UNKNOWN INDICATION
  2. LEVOTHYROXINE (LEVOTHYROXINE) [Concomitant]
  3. PREMARIN (ESTROGENS CONJUGATED) [Concomitant]

REACTIONS (1)
  - Impaired driving ability [None]
